FAERS Safety Report 18887613 (Version 1)
Quarter: 2021Q1

REPORT INFORMATION
  Report Type: Spontaneous
  Country: DE (occurrence: DE)
  Receive Date: 20210212
  Receipt Date: 20210212
  Transmission Date: 20210420
  Serious: Yes (Congenital Anomaly)
  Sender: FDA-Public Use
  Company Number: DE-AMGEN-DEUSP2021021608

PATIENT
  Age: 1 Day
  Sex: Female

DRUGS (3)
  1. BISOPROLOL [Concomitant]
     Active Substance: BISOPROLOL
     Indication: FOETAL EXPOSURE TIMING UNSPECIFIED
     Dosage: UNK
  2. LEVETIRACETAM. [Concomitant]
     Active Substance: LEVETIRACETAM
     Indication: FOETAL EXPOSURE TIMING UNSPECIFIED
     Dosage: UNK
  3. IVABRADINE [Suspect]
     Active Substance: IVABRADINE
     Indication: FOETAL EXPOSURE TIMING UNSPECIFIED
     Dosage: UNK
     Route: 065

REACTIONS (1)
  - Foetal growth restriction [Unknown]

NARRATIVE: CASE EVENT DATE: 2019
